FAERS Safety Report 13265485 (Version 1)
Quarter: 2017Q1

REPORT INFORMATION
  Report Type: Spontaneous
  Country: JP (occurrence: JP)
  Receive Date: 20170223
  Receipt Date: 20170223
  Transmission Date: 20170428
  Serious: Yes (Hospitalization)
  Sender: FDA-Public Use
  Company Number: JP-PFIZER INC-2017074751

PATIENT
  Age: 87 Year

DRUGS (4)
  1. LORAMET [Suspect]
     Active Substance: LORMETAZEPAM
     Dosage: UNK
     Route: 048
  2. JZOLOFT 50MG [Suspect]
     Active Substance: SERTRALINE HYDROCHLORIDE
     Dosage: 50 MG, 1X/DAY
     Route: 048
  3. SOLANAX [Suspect]
     Active Substance: ALPRAZOLAM
     Dosage: UNK
     Route: 048
  4. DOGMATYL [Suspect]
     Active Substance: SULPIRIDE
     Dosage: UNK
     Route: 048

REACTIONS (5)
  - Dizziness [Unknown]
  - Fall [Unknown]
  - Liver function test decreased [Unknown]
  - Fracture [Unknown]
  - Creatinine renal clearance decreased [Unknown]
